FAERS Safety Report 6776799-6 (Version None)
Quarter: 2010Q2

REPORT INFORMATION
  Report Type: 
  Country: None (occurrence: None)
  Receive Date: 20100617
  Receipt Date: 20100617
  Transmission Date: 20101027
  Serious: Yes (Life-Threatening)
  Sender: FDA-Public Use
  Company Number: None

PATIENT
  Age: 62 Year
  Sex: Female
  Weight: 87.9 kg

DRUGS (14)
  1. LOVENOX [Suspect]
  2. VITAMIN C [Concomitant]
  3. AMBIEN [Concomitant]
  4. NORVASC [Concomitant]
  5. EFFEXOR [Concomitant]
  6. DURAGESIC-100 [Concomitant]
  7. NITROSTAT [Concomitant]
  8. LOTENSIN [Concomitant]
  9. MAXZIDE [Concomitant]
  10. IMDUR [Concomitant]
  11. LORTAB [Concomitant]
  12. TYLENOL [Concomitant]
  13. TOPROL-XL [Concomitant]
  14. PROTONIX [Concomitant]

REACTIONS (3)
  - CEREBELLAR HAEMORRHAGE [None]
  - MENTAL STATUS CHANGES [None]
  - NAUSEA [None]
